FAERS Safety Report 7509708-2 (Version None)
Quarter: 2011Q2

REPORT INFORMATION
  Report Type: 
  Country: None (occurrence: None)
  Receive Date: 20110527
  Receipt Date: 20110519
  Transmission Date: 20111010
  Serious: Yes (Other)
  Sender: FDA-Public Use
  Company Number: GB-MERCK-1105USA02979

PATIENT
  Age: 71 Year
  Sex: Male

DRUGS (8)
  1. DECADRON [Suspect]
     Indication: CHEMOTHERAPY
     Route: 048
     Dates: start: 20110511
  2. OXALIPLATIN [Concomitant]
     Indication: CHEMOTHERAPY
     Route: 065
  3. LANSOPRAZOLE [Concomitant]
     Route: 065
     Dates: start: 20110413
  4. OXYCODONE HYDROCHLORIDE [Concomitant]
     Route: 065
     Dates: start: 20110413
  5. NAPROXEN [Concomitant]
     Route: 065
     Dates: start: 20110413
  6. MOVIPREP [Concomitant]
     Route: 065
     Dates: start: 20110413
  7. CAPECITABINE [Concomitant]
     Indication: CHEMOTHERAPY
     Route: 065
  8. OXYCONTIN [Concomitant]
     Route: 065
     Dates: start: 20110413

REACTIONS (1)
  - SNEEZING [None]
